FAERS Safety Report 13829595 (Version 1)
Quarter: 2017Q3

REPORT INFORMATION
  Report Type: Spontaneous
  Country: US (occurrence: US)
  Receive Date: 20170803
  Receipt Date: 20170803
  Transmission Date: 20171127
  Serious: Yes (Life-Threatening, Hospitalization, Other)
  Sender: FDA-Public Use
  Company Number: US-WEST-WARD PHARMACEUTICALS CORP.-US-H14001-17-02661

PATIENT
  Age: 32 Year
  Sex: Male

DRUGS (2)
  1. LOPERAMIDE [Interacting]
     Active Substance: LOPERAMIDE
     Indication: PRODUCT USED FOR UNKNOWN INDICATION
     Dosage: MAXIMUM RECOMMENDED DOSE 16 MG/DAY
     Route: 065
  2. FAMOTIDINE. [Suspect]
     Active Substance: FAMOTIDINE
     Indication: PRODUCT USED FOR UNKNOWN INDICATION
     Route: 065

REACTIONS (8)
  - Drug interaction [Recovered/Resolved]
  - Toxicity to various agents [Recovered/Resolved]
  - Drug abuse [Recovered/Resolved]
  - Electrocardiogram QT prolonged [Recovered/Resolved]
  - Conduction disorder [Recovered/Resolved]
  - Atrioventricular block first degree [Recovered/Resolved]
  - Ventricular tachycardia [Recovered/Resolved]
  - Enzyme inhibition [Recovered/Resolved]
